FAERS Safety Report 4596551-X (Version None)
Quarter: 2005Q1

REPORT INFORMATION
  Report Type: 
  Country: None (occurrence: None)
  Receive Date: 20050228
  Receipt Date: 20050210
  Transmission Date: 20050727
  Serious: Yes (Hospitalization)
  Sender: FDA-Public Use
  Company Number: 2005BI003375

PATIENT
  Age: 41 Year
  Sex: Female

DRUGS (11)
  1. AVONEX [Suspect]
     Indication: MULTIPLE SCLEROSIS
     Dosage: 30 UG; QW; IM
     Route: 030
     Dates: start: 20010101
  2. FEXOPENADINE [Concomitant]
  3. TOURO LA [Concomitant]
  4. SUDAFED 12 HOUR [Concomitant]
  5. LOESTRIN 1.5/30 [Concomitant]
  6. TRAMADOL HCL [Concomitant]
  7. IBUPROFEN [Concomitant]
  8. VALIUM [Concomitant]
  9. TYLENOL W/ CODEINE NO. 3 [Concomitant]
  10. BACTRIM DS [Concomitant]
  11. VICODIN [Concomitant]

REACTIONS (2)
  - MENORRHAGIA [None]
  - UTERINE LEIOMYOMA [None]
